FAERS Safety Report 13675743 (Version 1)
Quarter: 2017Q2

REPORT INFORMATION
  Report Type: Report from Study
  Country: US (occurrence: US)
  Receive Date: 20170621
  Receipt Date: 20170621
  Transmission Date: 20170830
  Serious: Yes (Other)
  Sender: FDA-Public Use
  Company Number: US-GILEAD-2017-0278820

PATIENT
  Age: 68 Year
  Sex: Female

DRUGS (1)
  1. RANOLAZINE. [Suspect]
     Active Substance: RANOLAZINE
     Indication: ANGINA PECTORIS
     Dosage: 500 MG, UNK
     Route: 048
     Dates: start: 20170302, end: 20170420

REACTIONS (4)
  - Microangiopathy [Unknown]
  - Angina pectoris [Unknown]
  - Neoplasm malignant [Not Recovered/Not Resolved]
  - Diabetes mellitus [Not Recovered/Not Resolved]
